FAERS Safety Report 6018723-X (Version None)
Quarter: 2008Q4

REPORT INFORMATION
  Report Type: 
  Country: None (occurrence: None)
  Receive Date: 20081222
  Receipt Date: 20081210
  Transmission Date: 20090506
  Serious: Yes (Hospitalization)
  Sender: FDA-Public Use
  Company Number: 236743J08USA

PATIENT
  Age: 65 Year
  Sex: Female
  Weight: 87 kg

DRUGS (9)
  1. REBIF [Suspect]
     Indication: MULTIPLE SCLEROSIS
     Dosage: 44 MCG, 3 IN 1 WEEKS, SUBCUTANEOUS
     Route: 058
     Dates: start: 20021122
  2. METOPROLOL TARTRATE [Concomitant]
  3. DYAZIDE [Concomitant]
  4. LEVOTHYROXINE SODIUM [Concomitant]
  5. POTASSIUM (POTASSIUM) [Concomitant]
  6. SIMVASTATIN [Concomitant]
  7. CHOLESTOFF (SITOSTEROL) [Concomitant]
  8. UNSPECIFIED ANTI-VIRAL MEDICATION   (ANTIVIRALS NOS) [Concomitant]
  9. IBUPROFEN [Concomitant]

REACTIONS (6)
  - BONE NEOPLASM MALIGNANT [None]
  - DENTAL CARIES [None]
  - LYMPHADENOPATHY [None]
  - PAPILLOMA [None]
  - SKIN GRAFT [None]
  - TOOTH DISORDER [None]
